FAERS Safety Report 6005001-8 (Version None)
Quarter: 2008Q4

REPORT INFORMATION
  Report Type: 
  Country: None (occurrence: None)
  Receive Date: 20081216
  Receipt Date: 20080902
  Transmission Date: 20090506
  Serious: No
  Sender: FDA-Public Use
  Company Number: US-BAUSCH-2008BL003506

PATIENT
  Age: 45 Year
  Sex: Male

DRUGS (2)
  1. ALAWAY [Suspect]
     Indication: EYE PRURITUS
     Route: 047
     Dates: start: 20080810, end: 20080810
  2. ALAWAY [Suspect]
     Route: 047
     Dates: start: 20080902, end: 20080902

REACTIONS (6)
  - EYE INFLAMMATION [None]
  - EYE IRRITATION [None]
  - INSOMNIA [None]
  - OCULAR DISCOMFORT [None]
  - PHOTOPHOBIA [None]
  - PRODUCT QUALITY ISSUE [None]
